FAERS Safety Report 21293218 (Version 1)
Quarter: 2022Q3

REPORT INFORMATION
  Report Type: Report from Study
  Country: BE (occurrence: BE)
  Receive Date: 20220905
  Receipt Date: 20220905
  Transmission Date: 20221027
  Serious: Yes (Other)
  Sender: FDA-Public Use
  Company Number: BE-NOVARTISPH-NVSC2022BE193606

PATIENT
  Sex: Male

DRUGS (2)
  1. ASCIMINIB [Suspect]
     Active Substance: ASCIMINIB
     Indication: Chronic myeloid leukaemia
     Dosage: 40 MG X 2 PER DAY
     Route: 065
  2. ASCIMINIB [Suspect]
     Active Substance: ASCIMINIB
     Dosage: 20 MG X 2 PER DAY
     Route: 065

REACTIONS (1)
  - Cerebrovascular accident [Unknown]
